FAERS Safety Report 8499239-8 (Version None)
Quarter: 2012Q3

REPORT INFORMATION
  Report Type: 
  Country: None (occurrence: None)
  Receive Date: 20120710
  Receipt Date: 20120703
  Transmission Date: 20120928
  Serious: Yes (Hospitalization, Other)
  Sender: FDA-Public Use
  Company Number: PHHY2012FR058307

PATIENT
  Sex: Female
  Weight: 90 kg

DRUGS (7)
  1. GLUCOPHAGE [Suspect]
     Indication: TYPE 2 DIABETES MELLITUS
     Dosage: 1000 MG, QD
     Route: 048
     Dates: end: 20120509
  2. OLMESARTAN MEDOXOMIL AND HYDROCHLOROTHIZIDE [Suspect]
     Route: 048
     Dates: start: 20120514
  3. GLUCOPHAGE [Suspect]
     Route: 048
     Dates: start: 20120514
  4. FLUVASTATIN SODIUM [Suspect]
     Dosage: 80 MG, QD
     Route: 048
     Dates: end: 20120509
  5. FLUVASTATIN SODIUM [Suspect]
     Route: 048
     Dates: start: 20120516
  6. OLMESARTAN MEDOXOMIL AND HYDROCHLOROTHIZIDE [Suspect]
     Dosage: 2 DF, QD
     Dates: start: 20110801, end: 20120509
  7. METFORMIN HCL [Suspect]
     Indication: TYPE 2 DIABETES MELLITUS
     Dosage: 2 DF, QD
     Route: 048
     Dates: start: 20120305, end: 20120427

REACTIONS (10)
  - SKIN LESION [None]
  - SKIN EXFOLIATION [None]
  - ROSEOLOVIRUS TEST POSITIVE [None]
  - FACE OEDEMA [None]
  - DRUG RASH WITH EOSINOPHILIA AND SYSTEMIC SYMPTOMS [None]
  - CHEILITIS [None]
  - RENAL FAILURE ACUTE [None]
  - RASH MACULO-PAPULAR [None]
  - EOSINOPHILIA [None]
  - RASH GENERALISED [None]
